FAERS Safety Report 4408174-3 (Version None)
Quarter: 2004Q3

REPORT INFORMATION
  Report Type: 
  Country: None (occurrence: None)
  Receive Date: 20040722
  Receipt Date: 20040705
  Transmission Date: 20050211
  Serious: Yes (Hospitalization)
  Sender: FDA-Public Use
  Company Number: JP-JNJFOC-20040701498

PATIENT
  Age: 60 Year
  Sex: Female
  Weight: 50 kg

DRUGS (3)
  1. REMICADE [Suspect]
     Indication: RHEUMATOID ARTHRITIS
     Dosage: 3 MG/KG, INTRAVENOUS
     Route: 042
     Dates: start: 20040610
  2. RHEUMATREX [Concomitant]
  3. ISONIAZID [Concomitant]

REACTIONS (3)
  - HYPERKINESIA [None]
  - SPINAL DISORDER [None]
  - WHITE BLOOD CELL COUNT INCREASED [None]
